FAERS Safety Report 7821931-6 (Version None)
Quarter: 2011Q4

REPORT INFORMATION
  Report Type: 
  Country: None (occurrence: None)
  Receive Date: 20111018
  Receipt Date: 20110523
  Transmission Date: 20120403
  Serious: No
  Sender: FDA-Public Use
  Company Number: US-ASTRAZENECA-2011SE31866

PATIENT
  Age: 86 Year
  Sex: Female

DRUGS (4)
  1. PROAIR HFA [Concomitant]
     Indication: BRONCHITIS
  2. ETODOLAC [Concomitant]
     Indication: ARTHRITIS
  3. LORAZEPAM [Concomitant]
     Indication: ANXIETY
  4. SYMBICORT [Suspect]
     Indication: BRONCHITIS
     Dosage: 160 / 4.5
     Route: 055
     Dates: start: 20100801

REACTIONS (5)
  - EYE DISCHARGE [None]
  - TREMOR [None]
  - EYE PRURITUS [None]
  - LACRIMATION INCREASED [None]
  - DYSPHONIA [None]
